FAERS Safety Report 16777863 (Version 1)
Quarter: 2019Q3

REPORT INFORMATION
  Report Type: Report from Study
  Country: GB (occurrence: GB)
  Receive Date: 20190905
  Receipt Date: 20190905
  Transmission Date: 20191005
  Serious: Yes (Death)
  Sender: FDA-Public Use
  Company Number: GB-AYTU BIOSCIENCES, INC.-2019AYT000108

PATIENT

DRUGS (1)
  1. NATESTO [Suspect]
     Active Substance: TESTOSTERONE
     Indication: PUBERTAL FAILURE
     Dosage: UNK
     Route: 045
     Dates: start: 20180717, end: 20180718

REACTIONS (1)
  - Death [Fatal]
